FAERS Safety Report 4818771-9 (Version None)
Quarter: 2005Q4

REPORT INFORMATION
  Report Type: 
  Country: None (occurrence: None)
  Receive Date: 20051101
  Receipt Date: 20051017
  Transmission Date: 20060501
  Serious: Yes (Disabling, Other)
  Sender: FDA-Public Use
  Company Number: PHEH2005US09869

PATIENT
  Age: 85 Year
  Sex: Female
  Weight: 59.8748 kg

DRUGS (5)
  1. VISUDYNE [Suspect]
     Indication: MACULAR DEGENERATION
     Dosage: 4.8 DAILY IV
     Route: 042
     Dates: start: 20050812, end: 20050812
  2. ASPIRIN [Concomitant]
  3. ATENOLOL [Concomitant]
  4. ALTACE [Concomitant]
  5. LOVASTATIN [Concomitant]

REACTIONS (11)
  - BLISTER [None]
  - BURNS THIRD DEGREE [None]
  - ERYTHEMA [None]
  - INFLAMMATION [None]
  - INFUSION RELATED REACTION [None]
  - INFUSION SITE EXTRAVASATION [None]
  - OEDEMA [None]
  - PHOTOSENSITIVITY REACTION [None]
  - SKIN BURNING SENSATION [None]
  - SKIN DISCOLOURATION [None]
  - SWELLING [None]
